FAERS Safety Report 19374869 (Version 9)
Quarter: 2024Q3

REPORT INFORMATION
  Report Type: Report from Study
  Country: CA (occurrence: CA)
  Receive Date: 20210604
  Receipt Date: 20240724
  Transmission Date: 20241017
  Serious: Yes (Hospitalization, Other)
  Sender: TAKEDA
  Company Number: CA-TAKEDA-2021TUS034907

PATIENT
  Age: 49 Year
  Sex: Female
  Weight: 50 kg

DRUGS (15)
  1. VEDOLIZUMAB [Suspect]
     Active Substance: VEDOLIZUMAB
     Indication: Crohn^s disease
     Dosage: 300 MILLIGRAM
     Route: 042
     Dates: start: 20210517
  2. VEDOLIZUMAB [Suspect]
     Active Substance: VEDOLIZUMAB
     Dosage: 300 MILLIGRAM
     Route: 042
     Dates: start: 20210727
  3. VEDOLIZUMAB [Suspect]
     Active Substance: VEDOLIZUMAB
     Dosage: 300 MILLIGRAM
     Route: 042
  4. VEDOLIZUMAB [Suspect]
     Active Substance: VEDOLIZUMAB
     Dosage: 300 MILLIGRAM
     Route: 042
     Dates: end: 20230418
  5. VEDOLIZUMAB [Suspect]
     Active Substance: VEDOLIZUMAB
     Dosage: 300 MILLIGRAM, Q4WEEKS
     Route: 042
     Dates: start: 20220322, end: 20230418
  6. VEDOLIZUMAB [Suspect]
     Active Substance: VEDOLIZUMAB
     Dosage: 300 MILLIGRAM, Q4WEEKS
     Route: 042
  7. VEDOLIZUMAB [Suspect]
     Active Substance: VEDOLIZUMAB
     Dosage: 300 MILLIGRAM, Q4WEEKS
     Route: 042
  8. PREDNISONE [Concomitant]
     Active Substance: PREDNISONE
     Dosage: UNK
  9. ENTOCORT [Concomitant]
     Active Substance: BUDESONIDE
     Dosage: 3 MILLIGRAM, QD
  10. SKYRIZI [Concomitant]
     Active Substance: RISANKIZUMAB-RZAA
     Dosage: UNK UNK, Q8WEEKS
  11. FAMOTIDINE [Concomitant]
     Active Substance: FAMOTIDINE
     Dosage: 10 MILLIGRAM, BID
  12. LORATADINE [Concomitant]
     Active Substance: LORATADINE
     Dosage: 10 MILLIGRAM, QD
  13. VITAMIN D NOS [Concomitant]
     Active Substance: CHOLECALCIFEROL\ERGOCALCIFEROL
     Dosage: UNK UNK, QD
     Route: 060
  14. ESTROGENS [Concomitant]
     Active Substance: ESTROGENS
     Dosage: UNK
  15. PROGESTERONE [Concomitant]
     Active Substance: PROGESTERONE
     Dosage: UNK

REACTIONS (4)
  - Crohn^s disease [Recovering/Resolving]
  - Intestinal stenosis [Unknown]
  - Abscess [Unknown]
  - Off label use [Unknown]

NARRATIVE: CASE EVENT DATE: 20220322
